FAERS Safety Report 5386855-5 (Version None)
Quarter: 2007Q3

REPORT INFORMATION
  Report Type: 
  Country: None (occurrence: None)
  Receive Date: 20070713
  Receipt Date: 20070702
  Transmission Date: 20080115
  Serious: Yes (Death, Hospitalization, Other)
  Sender: FDA-Public Use
  Company Number: US-PFIZER INC-2007027775

PATIENT
  Sex: Male
  Weight: 86.2 kg

DRUGS (1)
  1. CELEBREX [Suspect]
     Indication: ARTHRITIS
     Dates: start: 20010401, end: 20040901

REACTIONS (3)
  - CARDIAC ARREST [None]
  - HYPERTENSION [None]
  - SUDDEN CARDIAC DEATH [None]
